FAERS Safety Report 7715225-7 (Version None)
Quarter: 2011Q3

REPORT INFORMATION
  Report Type: 
  Country: None (occurrence: None)
  Receive Date: 20110829
  Receipt Date: 20110823
  Transmission Date: 20111222
  Serious: Yes (Other)
  Sender: FDA-Public Use
  Company Number: PHHY2011CN76500

PATIENT
  Sex: Female

DRUGS (1)
  1. SEBIVO [Suspect]
     Route: 048

REACTIONS (1)
  - MATERNAL EXPOSURE DURING PREGNANCY [None]
